FAERS Safety Report 5679923-1 (Version None)
Quarter: 2008Q1

REPORT INFORMATION
  Report Type: 
  Country: None (occurrence: None)
  Receive Date: 20080324
  Receipt Date: 20080306
  Transmission Date: 20080703
  Serious: Yes (Hospitalization)
  Sender: FDA-Public Use
  Company Number: 8030750

PATIENT
  Age: 79 Year
  Sex: Male

DRUGS (10)
  1. KEPPRA [Suspect]
     Indication: EPILEPSY
     Dosage: 750 MG /D PO
     Route: 048
  2. TEMGESIC [Suspect]
     Indication: PAIN
     Dosage: 0.2 MG 2/D SBL
     Dates: start: 20080112, end: 20080119
  3. GABAPENTIN [Suspect]
     Indication: EPILEPSY
     Dosage: 100 MG 3/D PO
     Route: 048
  4. SERTRALINE [Suspect]
     Dosage: 100 MG /D
  5. SIMCORA [Concomitant]
  6. DAFALGAN [Concomitant]
  7. SINTROM [Concomitant]
  8. ENATEC [Concomitant]
  9. DUPHALAC [Concomitant]
  10. EMODELLA [Concomitant]

REACTIONS (9)
  - BRONCHOPNEUMONIA [None]
  - DRUG INTERACTION [None]
  - DYSPHAGIA [None]
  - FEMUR FRACTURE [None]
  - GRAND MAL CONVULSION [None]
  - PNEUMONIA ASPIRATION [None]
  - SEPTIC SHOCK [None]
  - SOMNOLENCE [None]
  - UROSEPSIS [None]
